FAERS Safety Report 18575004 (Version 1)
Quarter: 2020Q4

REPORT INFORMATION
  Report Type: Spontaneous
  Country: JP (occurrence: JP)
  Receive Date: 20201203
  Receipt Date: 20201203
  Transmission Date: 20210114
  Serious: Yes (Other)
  Sender: FDA-Public Use
  Company Number: JP-PFIZER INC-2020470354

PATIENT
  Age: 89 Year

DRUGS (4)
  1. MEROPEN [MEROPENEM] [Concomitant]
     Active Substance: MEROPENEM
     Indication: CELLULITIS
  2. MEROPEN [MEROPENEM] [Concomitant]
     Active Substance: MEROPENEM
     Indication: BACTERIAL INFECTION
     Dosage: UNK
  3. ZYVOX [Suspect]
     Active Substance: LINEZOLID
     Indication: CELLULITIS
  4. ZYVOX [Suspect]
     Active Substance: LINEZOLID
     Indication: BACTERIAL INFECTION
     Dosage: 1200 MG, DAILY
     Route: 041
     Dates: start: 20201116

REACTIONS (2)
  - Hyponatraemia [Not Recovered/Not Resolved]
  - Loss of consciousness [Not Recovered/Not Resolved]

NARRATIVE: CASE EVENT DATE: 20201126
